FAERS Safety Report 10358597 (Version 1)
Quarter: 2014Q3

REPORT INFORMATION
  Report Type: Spontaneous
  Country: BE (occurrence: BE)
  Receive Date: 20140803
  Receipt Date: 20140803
  Transmission Date: 20150326
  Serious: Yes (Other)
  Sender: FDA-Public Use
  Company Number: PHHY2014BE092147

PATIENT
  Sex: Male

DRUGS (1)
  1. GILENYA [Suspect]
     Active Substance: FINGOLIMOD HYDROCHLORIDE
     Indication: MULTIPLE SCLEROSIS
     Route: 048
     Dates: start: 201405

REACTIONS (3)
  - Lymphocyte count abnormal [Unknown]
  - Fatigue [Unknown]
  - Multiple sclerosis relapse [Unknown]

NARRATIVE: CASE EVENT DATE: 2014
